FAERS Safety Report 11031844 (Version 1)
Quarter: 2015Q2

REPORT INFORMATION
  Report Type: Report from Study
  Country: JP (occurrence: JP)
  Receive Date: 20150415
  Receipt Date: 20150415
  Transmission Date: 20150821
  Serious: Yes (Hospitalization)
  Sender: FDA-Public Use
  Company Number: JP-CELGENE-087-50794-14053711

PATIENT
  Age: 68 Year
  Sex: Male
  Weight: 63 kg

DRUGS (16)
  1. VIDAZA [Suspect]
     Active Substance: AZACITIDINE
     Route: 058
     Dates: start: 20110627, end: 20110705
  2. UREPEARL [Concomitant]
     Active Substance: UREA
     Indication: PRODUCT USED FOR UNKNOWN INDICATION
     Route: 065
     Dates: start: 20110523
  3. VIDAZA [Suspect]
     Active Substance: AZACITIDINE
     Route: 058
     Dates: start: 20111017, end: 20111021
  4. VIDAZA [Suspect]
     Active Substance: AZACITIDINE
     Route: 058
     Dates: start: 20120702, end: 20120706
  5. PRIMOBOLAN-DEPOT [Concomitant]
     Active Substance: METHENOLONE ENANTHATE
     Indication: PRODUCT USED FOR UNKNOWN INDICATION
     Route: 065
     Dates: end: 20110513
  6. DALACIN-S [Concomitant]
     Active Substance: CLINDAMYCIN\CLINDAMYCIN PHOSPHATE
     Indication: PRODUCT USED FOR UNKNOWN INDICATION
     Route: 065
     Dates: start: 20110527, end: 20110530
  7. VIDAZA [Suspect]
     Active Substance: AZACITIDINE
     Route: 058
     Dates: start: 20111128, end: 20111202
  8. VIDAZA [Suspect]
     Active Substance: AZACITIDINE
     Route: 058
     Dates: start: 20120123, end: 20120127
  9. ZOFRAN [Concomitant]
     Active Substance: ONDANSETRON HYDROCHLORIDE
     Indication: PRODUCT USED FOR UNKNOWN INDICATION
     Route: 065
     Dates: start: 20110509, end: 20110517
  10. MAXIPIME [Concomitant]
     Active Substance: CEFEPIME HYDROCHLORIDE
     Indication: PRODUCT USED FOR UNKNOWN INDICATION
     Route: 065
     Dates: start: 20110525, end: 20110530
  11. VIDAZA [Suspect]
     Active Substance: AZACITIDINE
     Route: 058
     Dates: start: 20110725, end: 20110801
  12. GLAKAY [Concomitant]
     Active Substance: MENATETRENONE
     Indication: PRODUCT USED FOR UNKNOWN INDICATION
     Route: 065
     Dates: end: 20110513
  13. VIDAZA [Suspect]
     Active Substance: AZACITIDINE
     Route: 058
     Dates: start: 20120326, end: 20120330
  14. VIDAZA [Suspect]
     Active Substance: AZACITIDINE
     Indication: MYELODYSPLASTIC SYNDROME
     Route: 058
     Dates: start: 20110509, end: 20110517
  15. VIDAZA [Suspect]
     Active Substance: AZACITIDINE
     Route: 058
     Dates: start: 20110905, end: 20110909
  16. VIDAZA [Suspect]
     Active Substance: AZACITIDINE
     Route: 058
     Dates: start: 20120507, end: 20120511

REACTIONS (28)
  - C-reactive protein increased [Recovered/Resolved]
  - White blood cell count decreased [Recovering/Resolving]
  - Dyspnoea [Recovered/Resolved]
  - Diarrhoea [Recovered/Resolved]
  - Vomiting [Recovered/Resolved]
  - Diarrhoea [Recovered/Resolved]
  - White blood cell count decreased [Recovering/Resolving]
  - Anaemia [Not Recovered/Not Resolved]
  - Platelet count decreased [Not Recovered/Not Resolved]
  - Hyperchloraemia [Recovered/Resolved]
  - Dysphonia [Unknown]
  - Hyponatraemia [Recovered/Resolved]
  - Injection site reaction [Recovering/Resolving]
  - Pyrexia [Recovered/Resolved]
  - Nausea [Recovered/Resolved]
  - Aspartate aminotransferase increased [Recovered/Resolved]
  - Constipation [Recovered/Resolved]
  - Diarrhoea [Unknown]
  - Pyrexia [Recovered/Resolved]
  - Pruritus [Unknown]
  - C-reactive protein increased [Recovered/Resolved]
  - C-reactive protein increased [Recovered/Resolved]
  - Anaemia [Recovered/Resolved]
  - Nasopharyngitis [Recovered/Resolved]
  - Neutrophil count decreased [Recovering/Resolving]
  - Injection site erythema [Recovering/Resolving]
  - Erythema [Unknown]
  - Injection site reaction [Recovering/Resolving]

NARRATIVE: CASE EVENT DATE: 20110509
